FAERS Safety Report 7201627-4 (Version None)
Quarter: 2010Q4

REPORT INFORMATION
  Report Type: 
  Country: None (occurrence: None)
  Receive Date: 20101216
  Receipt Date: 20101203
  Transmission Date: 20110411
  Serious: Yes (Other)
  Sender: FDA-Public Use
  Company Number: 7030585

PATIENT
  Age: 79 Year
  Sex: Female

DRUGS (6)
  1. LEVOTHYROXINE SODIUM [Suspect]
     Indication: PRODUCT USED FOR UNKNOWN INDICATION
     Dosage: 1 DF (1 DF,1 IN 1 D) ORAL
     Route: 048
  2. COSAAR (LOSARTAN POTASSIUM) (LOSARTAN POTASSIUM) [Suspect]
     Indication: PRODUCT USED FOR UNKNOWN INDICATION
     Dosage: 1 DF (1 DF,1 IN 1 D) ORAL
     Route: 048
  3. ZOLPIDEM TARTRATE [Suspect]
     Dosage: 10 MG (10 MG,1 IN 1 D) ORAL
     Route: 048
  4. TORASEMIDE (TORASEMIDE) [Concomitant]
  5. TRAMADOL HCL [Concomitant]
  6. FLECTOR [Concomitant]

REACTIONS (2)
  - AGEUSIA [None]
  - HYPOGEUSIA [None]
